FAERS Safety Report 4926369-7 (Version None)
Quarter: 2006Q1

REPORT INFORMATION
  Report Type: 
  Country: None (occurrence: None)
  Receive Date: 20060228
  Receipt Date: 20051107
  Transmission Date: 20060701
  Serious: No
  Sender: FDA-Public Use
  Company Number: US-GLAXOSMITHKLINE-A0581234A

PATIENT
  Age: 44 Year
  Sex: Male

DRUGS (6)
  1. LAMICTAL [Suspect]
     Indication: BIPOLAR DISORDER
     Dosage: 25MG PER DAY
     Route: 048
     Dates: start: 20051105
  2. NEURONTIN [Concomitant]
  3. TRAZODONE [Concomitant]
  4. XANAX [Concomitant]
  5. AUGMENTIN [Concomitant]
  6. ALBUTEROL [Concomitant]

REACTIONS (1)
  - PRURITUS [None]
